FAERS Safety Report 9757427 (Version 1)
Quarter: 2013Q4

REPORT INFORMATION
  Report Type: Spontaneous
  Country: US (occurrence: US)
  Receive Date: 20131214
  Receipt Date: 20131214
  Transmission Date: 20140711
  Serious: No
  Sender: FDA-Public Use
  Company Number: US-THROMBOGENICS INC-JET-2013-252

PATIENT
  Sex: 0

DRUGS (1)
  1. JETREA [Suspect]
     Indication: VITREOUS ADHESIONS
     Dosage: 0.125 MG, ONE TIME DOSE
     Route: 031
     Dates: start: 20130516, end: 20130516

REACTIONS (1)
  - Drug effect incomplete [Unknown]
